FAERS Safety Report 14674811 (Version 1)
Quarter: 2018Q1

REPORT INFORMATION
  Report Type: Spontaneous
  Country: US (occurrence: US)
  Receive Date: 20180323
  Receipt Date: 20180323
  Transmission Date: 20180509
  Serious: Yes (Disabling, Other)
  Sender: FDA-Public Use
  Company Number: US-REGENERON PHARMACEUTICALS, INC.-2018-18741

PATIENT

DRUGS (3)
  1. EYLEA [Suspect]
     Active Substance: AFLIBERCEPT
     Indication: RETINAL VEIN OCCLUSION
     Dosage: LEFT EYE
     Dates: start: 2017, end: 201802
  2. EYLEA [Suspect]
     Active Substance: AFLIBERCEPT
     Indication: RETINAL HAEMORRHAGE
  3. EYLEA [Suspect]
     Active Substance: AFLIBERCEPT
     Indication: MACULAR OEDEMA
     Dosage: UNK, LAST PRIOR EVENT
     Dates: start: 201802, end: 201802

REACTIONS (4)
  - Eye infection [Unknown]
  - Blindness transient [Recovered/Resolved]
  - Eye inflammation [Unknown]
  - Eye pain [Unknown]

NARRATIVE: CASE EVENT DATE: 201802
